FAERS Safety Report 6906535-1 (Version None)
Quarter: 2010Q3

REPORT INFORMATION
  Report Type: 
  Country: None (occurrence: None)
  Receive Date: 20100804
  Receipt Date: 20100728
  Transmission Date: 20110219
  Serious: Yes (Death, Other)
  Sender: FDA-Public Use
  Company Number: CI-B.I. PHARMACEUTICALS,INC./RIDGEFIELD-2010-DE-04020GD

PATIENT
  Sex: Female

DRUGS (3)
  1. NEVIRAPINE [Suspect]
     Indication: HIV INFECTION
  2. LAMIVUDINE [Suspect]
     Indication: HIV INFECTION
  3. ZIDOVUDINE [Suspect]
     Indication: HIV INFECTION

REACTIONS (6)
  - ACQUIRED IMMUNODEFICIENCY SYNDROME [None]
  - ANAEMIA [None]
  - DRUG TOXICITY [None]
  - LACTIC ACIDOSIS [None]
  - MYALGIA [None]
  - RASH [None]
